FAERS Safety Report 6762232-7 (Version None)
Quarter: 2010Q2

REPORT INFORMATION
  Report Type: 
  Country: None (occurrence: None)
  Receive Date: 20100609
  Receipt Date: 20100525
  Transmission Date: 20101027
  Serious: Yes (Hospitalization, Other)
  Sender: FDA-Public Use
  Company Number: PHEH2008US01033

PATIENT
  Sex: Male

DRUGS (1)
  1. ELIDEL [Suspect]
     Route: 061
     Dates: start: 20040101

REACTIONS (28)
  - ALOPECIA [None]
  - ANAEMIA [None]
  - CONJUNCTIVITIS [None]
  - DYSPNOEA [None]
  - HODGKIN'S DISEASE [None]
  - HODGKIN'S DISEASE STAGE III [None]
  - INJURY [None]
  - LYMPHADENOPATHY [None]
  - LYMPHADENOPATHY MEDIASTINAL [None]
  - MEDIASTINUM NEOPLASM [None]
  - MUSCULAR WEAKNESS [None]
  - NEUROPATHY PERIPHERAL [None]
  - NEUTROPENIA [None]
  - ORAL PAIN [None]
  - PANCYTOPENIA [None]
  - PARATRACHEAL LYMPHADENOPATHY [None]
  - PERONEAL NERVE PALSY [None]
  - PHARYNGITIS [None]
  - PULMONARY HILUM MASS [None]
  - RASH [None]
  - RETROPERITONEAL LYMPHADENOPATHY [None]
  - STOMATITIS [None]
  - THROMBOCYTOPENIA [None]
  - TINEA INFECTION [None]
  - TORUS FRACTURE [None]
  - VARICELLA [None]
  - VOMITING [None]
  - WOUND INFECTION [None]
